FAERS Safety Report 17093353 (Version 2)
Quarter: 2020Q2

REPORT INFORMATION
  Report Type: Report from Study
  Country: US (occurrence: US)
  Receive Date: 20191129
  Receipt Date: 20200410
  Transmission Date: 20200713
  Serious: Yes (Death, Other)
  Sender: FDA-Public Use
  Company Number: US-GILEAD-2019-0440160

PATIENT
  Age: 30 Year
  Sex: Female

DRUGS (26)
  1. DILAUDID [Concomitant]
     Active Substance: HYDROMORPHONE HYDROCHLORIDE
  2. ESCITALOPRAM OXALATE. [Concomitant]
     Active Substance: ESCITALOPRAM OXALATE
  3. OXYGEN. [Concomitant]
     Active Substance: OXYGEN
  4. HEPARIN [Concomitant]
     Active Substance: HEPARIN SODIUM
  5. KEPPRA [Concomitant]
     Active Substance: LEVETIRACETAM
  6. TOPAMAX [Concomitant]
     Active Substance: TOPIRAMATE
  7. DIAZEPAM. [Concomitant]
     Active Substance: DIAZEPAM
  8. SODIUM CHLORIDE. [Concomitant]
     Active Substance: SODIUM CHLORIDE
  9. EPINEPHRINE. [Concomitant]
     Active Substance: EPINEPHRINE
  10. OSMOLITE [Concomitant]
  11. PULMICORT TURBUHALER [Concomitant]
     Active Substance: BUDESONIDE
  12. FENTANYL. [Concomitant]
     Active Substance: FENTANYL
  13. ACETAMINOPHEN. [Concomitant]
     Active Substance: ACETAMINOPHEN
  14. AZTREONAM LYSINE [Suspect]
     Active Substance: AZTREONAM LYSINE
     Indication: CYSTIC FIBROSIS
     Dosage: 75 MG, TID FOR 28 DAYS ON AND 28 DAYS OFF
     Route: 055
  15. COUMADIN [Concomitant]
     Active Substance: WARFARIN SODIUM
  16. NORMAL SALINE [Concomitant]
     Active Substance: SODIUM CHLORIDE
  17. XOLAIR [Concomitant]
     Active Substance: OMALIZUMAB
  18. ATENOLOL. [Concomitant]
     Active Substance: ATENOLOL
  19. TOBRAMYCIN. [Concomitant]
     Active Substance: TOBRAMYCIN
  20. GAMUNEX [Concomitant]
     Active Substance: HUMAN IMMUNOGLOBULIN G
  21. XOPENEX [Concomitant]
     Active Substance: LEVALBUTEROL HYDROCHLORIDE
  22. PATANASE [Concomitant]
     Active Substance: OLOPATADINE HYDROCHLORIDE
  23. INFED [Concomitant]
     Active Substance: IRON DEXTRAN
  24. DIPHENHYDRAMINE. [Concomitant]
     Active Substance: DIPHENHYDRAMINE
  25. PULMOZYME [Concomitant]
     Active Substance: DORNASE ALFA
  26. REGLAN [Concomitant]
     Active Substance: METOCLOPRAMIDE HYDROCHLORIDE

REACTIONS (1)
  - Death [Fatal]

NARRATIVE: CASE EVENT DATE: 20191126
